FAERS Safety Report 22295040 (Version 2)
Quarter: 2023Q2

REPORT INFORMATION
  Report Type: Report from Study
  Country: US (occurrence: None)
  Receive Date: 20230508
  Receipt Date: 20230512
  Transmission Date: 20230722
  Serious: Yes (Other)
  Sender: FDA-Public Use
  Company Number: 2023A064598

PATIENT
  Sex: Female

DRUGS (1)
  1. FASENRA [Suspect]
     Active Substance: BENRALIZUMAB
     Route: 058

REACTIONS (3)
  - Dyspnoea [Unknown]
  - Decreased activity [Unknown]
  - Drug ineffective [Unknown]
